FAERS Safety Report 24667619 (Version 1)
Quarter: 2024Q4

REPORT INFORMATION
  Report Type: Spontaneous
  Country: US (occurrence: US)
  Receive Date: 20241126
  Receipt Date: 20241126
  Transmission Date: 20250114
  Serious: Yes (Other)
  Sender: AMGEN
  Company Number: US-AMGEN-USASP2024230057

PATIENT
  Age: 61 Year
  Sex: Female

DRUGS (25)
  1. TEPEZZA [Suspect]
     Active Substance: TEPROTUMUMAB-TRBW
     Indication: Hyperthyroidism
     Dosage: UNK UNK, Q3WK (FIRST HALF DOSE)
     Route: 040
     Dates: start: 20221019
  2. TEPEZZA [Suspect]
     Active Substance: TEPROTUMUMAB-TRBW
     Dosage: 1020 MILLIGRAM, Q3WK (SECOND INFUSION)
     Route: 040
     Dates: start: 20221118
  3. TEPEZZA [Suspect]
     Active Substance: TEPROTUMUMAB-TRBW
     Dosage: 1020 MILLIGRAM, Q3WK (THIRD INFUSION)
     Route: 040
     Dates: start: 20221209
  4. TEPEZZA [Suspect]
     Active Substance: TEPROTUMUMAB-TRBW
     Dosage: 1020 MILLIGRAM, Q3WK (FOURTH INFUSION)
     Route: 040
     Dates: start: 20221230
  5. TEPEZZA [Suspect]
     Active Substance: TEPROTUMUMAB-TRBW
     Dosage: 1000 MILLIGRAM, Q3WK (FIFTH INFUSION)
     Route: 040
     Dates: start: 20230120
  6. TEPEZZA [Suspect]
     Active Substance: TEPROTUMUMAB-TRBW
     Dosage: 980 MILLIGRAM, Q3WK (LAST INFUSION)
     Route: 040
     Dates: start: 20230324
  7. PERCOCET [Concomitant]
     Active Substance: ACETAMINOPHEN\OXYCODONE HYDROCHLORIDE
     Dosage: UNK
     Dates: start: 20220202
  8. SYNTHROID [Concomitant]
     Active Substance: LEVOTHYROXINE SODIUM
     Dosage: 100 MICROGRAM, QD
     Route: 048
     Dates: start: 20220202
  9. SYNTHROID [Concomitant]
     Active Substance: LEVOTHYROXINE SODIUM
     Dosage: 88 MICROGRAM, QD (DOSE DECREASED)
     Route: 048
  10. Artificial tears [Concomitant]
     Dosage: TID (1-2 DROPS IN AFFECTED EYE)
     Dates: start: 20230119
  11. CALTRATE [Concomitant]
     Active Substance: CALCIUM CARBONATE
     Dosage: UNK UNK, QD
     Dates: start: 20230119
  12. VUITY [Concomitant]
     Active Substance: PILOCARPINE HYDROCHLORIDE
     Dosage: QD (1 DROP IN BOTH EYES)
     Dates: start: 20230119
  13. VITAMINS [Concomitant]
     Active Substance: VITAMINS
     Dosage: UNK UNK, QD
     Dates: start: 20230406
  14. OXYCODONE [Concomitant]
     Active Substance: OXYCODONE
     Dosage: STRENGTH: 80 MILLIGRAM (PRN)
  15. TYLENOL [Concomitant]
     Active Substance: ACETAMINOPHEN
     Dosage: PRN
  16. VITAMIN D [Concomitant]
     Active Substance: VITAMIN D NOS
     Dosage: UNK UNK, QD
  17. ZYRTEC [Concomitant]
     Active Substance: CETIRIZINE HYDROCHLORIDE
     Dosage: UNK, QD
     Route: 048
     Dates: start: 20220202
  18. MAXITROL [Concomitant]
     Active Substance: DEXAMETHASONE\NEOMYCIN SULFATE\POLYMYXIN B SULFATE
     Dosage: TID (STRENGTH: 3.5 MG/G-10,000 UNIT/G-0.1 %), INSTILL 1 DROP IN RIGHT UPPER EYELID)
     Route: 047
     Dates: start: 20220202
  19. MAXITROL [Concomitant]
     Active Substance: DEXAMETHASONE\NEOMYCIN SULFATE\POLYMYXIN B SULFATE
     Dosage: BID (STRENGTH: 3.5 MG/G-10,000 UNIT/G-0.1 %), INSTILL 1 DROP IN RIGHT UPPER EYELID
     Route: 047
     Dates: start: 20220202
  20. THYROID [Concomitant]
     Active Substance: LEVOTHYROXINE\LIOTHYRONINE
     Dosage: UNK
     Dates: start: 20220202
  21. PHENYLEPHRINE [Concomitant]
     Active Substance: PHENYLEPHRINE
     Dosage: QD (INSTILLED TO THE RIGHT EYE)
     Route: 047
  22. VICODIN [Concomitant]
     Active Substance: ACETAMINOPHEN\HYDROCODONE BITARTRATE
     Indication: Pain
     Dosage: (EVERY 4 TO 6 HR)
     Route: 048
  23. THERATEARS [Concomitant]
     Active Substance: CARBOXYMETHYLCELLULOSE SODIUM
     Indication: Dry eye
     Dosage: (BID-TID TIMES A DAY)
  24. SELENIUM [Concomitant]
     Active Substance: SELENIUM
     Dosage: 100 MICROGRAM, QD
  25. CALCIUM [Concomitant]
     Active Substance: CALCIUM
     Dosage: 500 MILLIGRAM
     Route: 048

REACTIONS (9)
  - Deafness neurosensory [Not Recovered/Not Resolved]
  - Diarrhoea [Recovered/Resolved]
  - Headache [Recovered/Resolved]
  - Muscle spasms [Not Recovered/Not Resolved]
  - Drug ineffective [Unknown]
  - Menopause [Unknown]
  - Blood glucose abnormal [Unknown]
  - Pruritus [Unknown]
  - Cerumen impaction [Unknown]

NARRATIVE: CASE EVENT DATE: 20220101
